FAERS Safety Report 9597312 (Version 1)
Quarter: 2013Q4

REPORT INFORMATION
  Report Type: Spontaneous
  Country: US (occurrence: US)
  Receive Date: 20131004
  Receipt Date: 20131004
  Transmission Date: 20140711
  Serious: No
  Sender: FDA-Public Use
  Company Number: US-AMGEN-USASP2013018586

PATIENT
  Age: 44 Year
  Sex: Female
  Weight: 76.19 kg

DRUGS (5)
  1. ENBREL [Suspect]
     Indication: PSORIATIC ARTHROPATHY
     Dosage: 50 MG, QWK
     Route: 058
  2. MULTIVITAMINS, PLAIN [Concomitant]
     Dosage: UNK
  3. EFFEXOR [Concomitant]
     Dosage: 25 MG, UNK
  4. ADVIL                              /00044201/ [Concomitant]
     Dosage: 200 MG, UNK
  5. ALEVE [Concomitant]
     Dosage: 220 MG, UNK

REACTIONS (3)
  - Pain in extremity [Unknown]
  - Local swelling [Unknown]
  - Influenza [Unknown]
